FAERS Safety Report 7930803-8 (Version None)
Quarter: 2011Q4

REPORT INFORMATION
  Report Type: 
  Country: None (occurrence: None)
  Receive Date: 20111121
  Receipt Date: 20111114
  Transmission Date: 20120403
  Serious: Yes (Other)
  Sender: FDA-Public Use
  Company Number: JP-GLAXOSMITHKLINE-B0763426A

PATIENT
  Age: 68 Year
  Sex: Male

DRUGS (7)
  1. ARTANE [Concomitant]
     Dosage: 4MG PER DAY
     Route: 048
  2. GASMOTIN [Concomitant]
     Route: 048
  3. REQUIP [Suspect]
     Indication: PRODUCT USED FOR UNKNOWN INDICATION
     Dosage: 6MG PER DAY
     Route: 048
  4. MECOBALAMIN [Concomitant]
     Route: 065
  5. UNKNOWN DRUG [Concomitant]
     Dosage: 200MG PER DAY
     Route: 048
  6. AMLODIPINE [Concomitant]
     Route: 048
  7. ALOSENN [Concomitant]
     Route: 048

REACTIONS (2)
  - CATARACT [None]
  - HALLUCINATION [None]
